FAERS Safety Report 5886049-0 (Version None)
Quarter: 2008Q3

REPORT INFORMATION
  Report Type: 
  Country: None (occurrence: None)
  Receive Date: 20080917
  Receipt Date: 20080729
  Transmission Date: 20090109
  Serious: No
  Sender: FDA-Public Use
  Company Number: US-BAYER-200829998NA

PATIENT
  Sex: Female

DRUGS (1)
  1. YAZ [Suspect]
     Indication: MENSTRUATION IRREGULAR
     Route: 048
     Dates: start: 20060101, end: 20080708

REACTIONS (4)
  - ABDOMINAL DISTENSION [None]
  - BODY TEMPERATURE INCREASED [None]
  - MALAISE [None]
  - NO ADVERSE EVENT [None]
